FAERS Safety Report 24246338 (Version 1)
Quarter: 2024Q3

REPORT INFORMATION
  Report Type: Spontaneous
  Country: GB (occurrence: GB)
  Receive Date: 20240825
  Receipt Date: 20240825
  Transmission Date: 20241017
  Serious: Yes (Other)
  Sender: DR REDDYS
  Company Number: None

PATIENT

DRUGS (4)
  1. OMEPRAZOLE [Suspect]
     Active Substance: OMEPRAZOLE
     Indication: Helicobacter infection
     Dosage: 20MG ONE TWICE DAILY
  2. FINGOLIMOD [Suspect]
     Active Substance: FINGOLIMOD
     Indication: Helicobacter infection
     Dosage: 0.5MG ONCE DAILY
  3. TETRACYCLINE HYDROCHLORIDE [Suspect]
     Active Substance: TETRACYCLINE HYDROCHLORIDE
     Indication: Helicobacter infection
     Dosage: 250 MG 2 TO BE TAKEN 4 TIMES DAILY
     Dates: start: 20240815, end: 20240817
  4. AMOXICILLIN [Suspect]
     Active Substance: AMOXICILLIN
     Indication: Helicobacter infection
     Dosage: 500 MG 2 TO BE TAKEN TWICE DAILY

REACTIONS (4)
  - Paraesthesia oral [Recovered/Resolved]
  - Somnolence [Recovering/Resolving]
  - Feeling jittery [Recovering/Resolving]
  - Multiple sclerosis relapse [Not Recovered/Not Resolved]

NARRATIVE: CASE EVENT DATE: 20240815
